FAERS Safety Report 8620847-5 (Version None)
Quarter: 2012Q3

REPORT INFORMATION
  Report Type: 
  Country: None (occurrence: None)
  Receive Date: 20120820
  Receipt Date: 20120820
  Transmission Date: 20120928
  Serious: Yes (Death)
  Sender: FDA-Public Use
  Company Number: None

PATIENT
  Age: 89 Year
  Sex: Male

DRUGS (2)
  1. AVASTIN [Suspect]
     Indication: AGE-RELATED MACULAR DEGENERATION
     Dosage: 1, EVERY 6 WEEKS, INTRAOCULAR
     Route: 031
     Dates: start: 20070323, end: 20120502
  2. EYLEA [Suspect]
     Indication: AGE-RELATED MACULAR DEGENERATION
     Dosage: 1, EVERY 4 WEEKS, INTRAOCULAR
     Route: 031
     Dates: start: 20120531, end: 20120725

REACTIONS (1)
  - NO ADVERSE EVENT [None]
